FAERS Safety Report 4459434-1 (Version None)
Quarter: 2004Q3

REPORT INFORMATION
  Report Type: 
  Country: None (occurrence: None)
  Receive Date: 20040927
  Receipt Date: 20040913
  Transmission Date: 20050211
  Serious: Yes (Hospitalization)
  Sender: FDA-Public Use
  Company Number: ES-GLAXOSMITHKLINE-B0345624A

PATIENT
  Age: 50 Year
  Sex: Female

DRUGS (2)
  1. LAMICTAL [Suspect]
     Dates: start: 20040701
  2. VALPROATE [Concomitant]
     Dates: end: 20040701

REACTIONS (3)
  - ANOREXIA [None]
  - BONE MARROW DEPRESSION [None]
  - PYREXIA [None]
